FAERS Safety Report 7657075-6 (Version None)
Quarter: 2011Q3

REPORT INFORMATION
  Report Type: 
  Country: None (occurrence: None)
  Receive Date: 20110804
  Receipt Date: 20100712
  Transmission Date: 20111222
  Serious: No
  Sender: FDA-Public Use
  Company Number: US-GLAXOSMITHKLINE-A0869747A

PATIENT
  Age: 69 Year
  Sex: Female

DRUGS (8)
  1. PREMARIN [Concomitant]
  2. ADVAIR DISKUS 100/50 [Suspect]
     Indication: CHRONIC OBSTRUCTIVE PULMONARY DISEASE
     Dosage: 2PUFF TWICE PER DAY
     Route: 055
     Dates: start: 20070101
  3. SPIRIVA [Concomitant]
  4. ATENOLOL [Concomitant]
  5. PROTONIX [Concomitant]
  6. ALBUTEROL SULFATE AUTOHALER [Concomitant]
  7. HYDROCHLOROTHIAZIDE [Concomitant]
  8. ONE A DAY VITAMIN [Concomitant]

REACTIONS (4)
  - ANXIETY [None]
  - BRONCHITIS [None]
  - OXYGEN SATURATION DECREASED [None]
  - FEAR [None]
